FAERS Safety Report 16473808 (Version 2)
Quarter: 2019Q2

REPORT INFORMATION
  Report Type: Report from Study
  Country: CA (occurrence: CA)
  Receive Date: 20190625
  Receipt Date: 20190628
  Transmission Date: 20190711
  Serious: Yes (Hospitalization, Other)
  Sender: FDA-Public Use
  Company Number: CA-PFIZER INC-2013049597

PATIENT
  Age: 44 Year
  Sex: Male
  Weight: 150 kg

DRUGS (3)
  1. ENBREL [Suspect]
     Active Substance: ETANERCEPT
     Indication: RHEUMATOID ARTHRITIS
     Dosage: 50 MG, WEEKLY
     Route: 058
     Dates: start: 20101213, end: 20120808
  2. METHOTREXATE SODIUM. [Suspect]
     Active Substance: METHOTREXATE SODIUM
     Indication: RHEUMATOID ARTHRITIS
     Dosage: 15 MG, QWK
     Route: 058
     Dates: start: 20100210, end: 20100810
  3. ENBREL [Suspect]
     Active Substance: ETANERCEPT
     Dosage: 50 MG, WEEKLY
     Route: 058

REACTIONS (12)
  - Red cell distribution width increased [Recovered/Resolved]
  - Haemoglobin decreased [Recovered/Resolved]
  - Pneumonia [Recovered/Resolved]
  - Pneumonia [Recovered/Resolved]
  - Pleural effusion [Recovered/Resolved]
  - Mean cell volume increased [Recovered/Resolved]
  - Monocyte count increased [Recovered/Resolved]
  - Neutrophil count increased [Recovered/Resolved]
  - Haematocrit decreased [Recovered/Resolved]
  - White blood cell count increased [Recovered/Resolved]
  - Empyema [Recovered/Resolved]
  - Red blood cell count decreased [Recovered/Resolved]

NARRATIVE: CASE EVENT DATE: 20120808
